FAERS Safety Report 9321897 (Version 1)
Quarter: 2013Q2

REPORT INFORMATION
  Report Type: Spontaneous
  Country: US (occurrence: None)
  Receive Date: 20130530
  Receipt Date: 20130530
  Transmission Date: 20140414
  Serious: Yes (Hospitalization)
  Sender: FDA-Public Use
  Company Number: None

PATIENT
  Age: 84 Year
  Sex: Female
  Weight: 68.9 kg

DRUGS (3)
  1. PROPOFOL [Suspect]
  2. COUMADIN [Concomitant]
  3. ENOXAPARIN [Concomitant]

REACTIONS (1)
  - Swollen tongue [None]
